FAERS Safety Report 6911898-7 (Version None)
Quarter: 2010Q3

REPORT INFORMATION
  Report Type: 
  Country: None (occurrence: None)
  Receive Date: 20100806
  Receipt Date: 20070831
  Transmission Date: 20110219
  Serious: No
  Sender: FDA-Public Use
  Company Number: US-PFIZER INC-2007064353

PATIENT
  Sex: Male
  Weight: 150 kg

DRUGS (15)
  1. DETROL LA [Suspect]
     Indication: MICTURITION URGENCY
     Route: 048
     Dates: start: 20070702
  2. DETROL LA [Suspect]
     Indication: URINARY INCONTINENCE
  3. METFORMIN HCL [Concomitant]
  4. GLYBURIDE [Concomitant]
  5. BENICAR HCT [Concomitant]
  6. ACTOS [Concomitant]
  7. ACETYLSALICYLIC ACID SRT [Concomitant]
  8. ASCORBIC ACID [Concomitant]
  9. MULTI-VITAMINS [Concomitant]
  10. VITAMIN E [Concomitant]
  11. COMPLETE MEGA B [Concomitant]
  12. FISH OIL [Concomitant]
  13. CINNAMON [Concomitant]
  14. FLAXSEED OIL [Concomitant]
  15. PLANT ALKALOIDS AND OTHER NATURAL PRODUCTS [Concomitant]

REACTIONS (3)
  - ABDOMINAL DISCOMFORT [None]
  - ABDOMINAL PAIN [None]
  - FATIGUE [None]
